FAERS Safety Report 11203307 (Version 1)
Quarter: 2015Q2

REPORT INFORMATION
  Report Type: Spontaneous
  Country: US (occurrence: US)
  Receive Date: 20150619
  Receipt Date: 20150619
  Transmission Date: 20150821
  Serious: Yes (Hospitalization)
  Sender: FDA-Public Use
  Company Number: US-INCYTE CORPORATION-2015IN002694

PATIENT
  Age: 66 Year
  Sex: Male
  Weight: 81.63 kg

DRUGS (7)
  1. PANTOPRAZOLE [Concomitant]
     Active Substance: PANTOPRAZOLE SODIUM
  2. LANTUS [Concomitant]
     Active Substance: INSULIN GLARGINE
  3. LISINOPRIL. [Concomitant]
     Active Substance: LISINOPRIL
  4. LYRICA [Concomitant]
     Active Substance: PREGABALIN
  5. CENTRUM                            /07499601/ [Concomitant]
  6. JAKAFI [Suspect]
     Active Substance: RUXOLITINIB
     Indication: MYELOFIBROSIS
     Dosage: 5 MG, QD
     Route: 048
     Dates: start: 20140509, end: 20150606
  7. GLIPIZIDE. [Concomitant]
     Active Substance: GLIPIZIDE

REACTIONS (1)
  - Leukaemia [Unknown]

NARRATIVE: CASE EVENT DATE: 20150606
